FAERS Safety Report 4713048-4 (Version None)
Quarter: 2005Q3

REPORT INFORMATION
  Report Type: 
  Country: None (occurrence: None)
  Receive Date: 20050711
  Receipt Date: 20050630
  Transmission Date: 20060218
  Serious: Yes (Hospitalization)
  Sender: FDA-Public Use
  Company Number: 2005077759

PATIENT
  Age: 66 Year
  Sex: Female

DRUGS (7)
  1. MEDROXYPROGESTERONE ACETATE [Suspect]
     Indication: BREAST CANCER
     Dosage: 600 MG (200 MG, TID), ORAL
     Route: 048
     Dates: start: 20041115
  2. WARFARIN POTASSIUM [Concomitant]
  3. ARIMIDEX ^ASTRAZENECA^ (ANASTROZOLE) [Concomitant]
  4. BLOPRESS (CANDESARTAN CILEXETIL) [Concomitant]
  5. FAMOTIDINE [Concomitant]
  6. HALCION [Concomitant]
  7. KAYWAN (PHYTOMENADIONE) [Concomitant]

REACTIONS (2)
  - COAGULATION TIME PROLONGED [None]
  - INTERNATIONAL NORMALISED RATIO INCREASED [None]
